FAERS Safety Report 16203229 (Version 2)
Quarter: 2019Q2

REPORT INFORMATION
  Report Type: Spontaneous
  Country: CN (occurrence: CN)
  Receive Date: 20190416
  Receipt Date: 20190419
  Transmission Date: 20190711
  Serious: Yes (Other)
  Sender: FDA-Public Use
  Company Number: CN-PFIZER INC-2019158053

PATIENT
  Age: 56 Year
  Sex: Male
  Weight: 62 kg

DRUGS (3)
  1. VORICONAZOLE. [Suspect]
     Active Substance: VORICONAZOLE
     Indication: INFECTION
     Dosage: 400 MG, 2X/DAY
     Dates: start: 20160612, end: 20160612
  2. VORICONAZOLE. [Suspect]
     Active Substance: VORICONAZOLE
     Indication: ANTI-INFECTIVE THERAPY
     Dosage: 200 MG, 2X/DAY
     Route: 048
     Dates: start: 20160622, end: 20160629
  3. VORICONAZOLE. [Suspect]
     Active Substance: VORICONAZOLE
     Dosage: 200 MG, 2X/DAY
     Dates: end: 20160629

REACTIONS (5)
  - Tremor [Recovered/Resolved]
  - Hepatic function abnormal [Recovered/Resolved]
  - Mental impairment [Unknown]
  - Seizure [Recovered/Resolved]
  - Visual impairment [Recovered/Resolved]

NARRATIVE: CASE EVENT DATE: 20160624
